FAERS Safety Report 17791203 (Version 1)
Quarter: 2020Q2

REPORT INFORMATION
  Report Type: Spontaneous
  Country: US (occurrence: US)
  Receive Date: 20200514
  Receipt Date: 20200514
  Transmission Date: 20200714
  Serious: Yes (Other)
  Sender: FDA-Public Use
  Company Number: None

PATIENT
  Age: 65 Year
  Sex: Male
  Weight: 95.26 kg

DRUGS (1)
  1. DIVALPROEX ER [Suspect]
     Active Substance: DIVALPROEX SODIUM
     Indication: MOOD ALTERED
     Dates: start: 20200213, end: 20200320

REACTIONS (3)
  - Balance disorder [None]
  - Ammonia increased [None]
  - Lethargy [None]

NARRATIVE: CASE EVENT DATE: 20200320
